FAERS Safety Report 7062954-7 (Version None)
Quarter: 2010Q4

REPORT INFORMATION
  Report Type: 
  Country: None (occurrence: None)
  Receive Date: 20101026
  Receipt Date: 20100326
  Transmission Date: 20110411
  Serious: Yes (Other)
  Sender: FDA-Public Use
  Company Number: US-PFIZER INC-2010040059

PATIENT
  Sex: Female
  Weight: 62.6 kg

DRUGS (5)
  1. LIPITOR [Suspect]
     Indication: BLOOD CHOLESTEROL INCREASED
     Dosage: 20 MG, 1X/DAY
     Route: 048
     Dates: start: 20090601, end: 20100319
  2. LIPITOR [Suspect]
     Dosage: 10 MG, DAILY
     Route: 048
     Dates: end: 20090601
  3. AMILORIDE [Concomitant]
     Indication: HYPERTENSION
     Dosage: UNK
  4. METOPROLOL [Concomitant]
     Indication: HYPERTENSION
     Dosage: UNK
  5. FEMARA [Concomitant]
     Dosage: UNK

REACTIONS (2)
  - BLOOD CHOLESTEROL INCREASED [None]
  - MYALGIA [None]
